FAERS Safety Report 7504810-3 (Version None)
Quarter: 2011Q2

REPORT INFORMATION
  Report Type: 
  Country: None (occurrence: None)
  Receive Date: 20110525
  Receipt Date: 20110118
  Transmission Date: 20111010
  Serious: No
  Sender: FDA-Public Use
  Company Number: US-AMGEN-USASP2011003293

PATIENT
  Age: 61 Year
  Sex: Female

DRUGS (11)
  1. LISINOPRIL [Concomitant]
  2. ARANESP [Suspect]
     Indication: ANAEMIA OF MALIGNANT DISEASE
     Dates: start: 20101006
  3. VITAMIN C                          /00008001/ [Concomitant]
  4. VITAMIN A [Concomitant]
  5. TYLENOL (CAPLET) [Concomitant]
  6. ACTOS [Concomitant]
  7. PROCRIT [Suspect]
     Indication: PRODUCT USED FOR UNKNOWN INDICATION
     Dosage: UNK
     Dates: end: 20101001
  8. OMEPRAZOLE [Concomitant]
  9. LOVASTATIN [Concomitant]
  10. HYDROCHLOROTHIAZIDE [Concomitant]
  11. LASIX [Concomitant]

REACTIONS (3)
  - GENERALISED OEDEMA [None]
  - PAIN IN EXTREMITY [None]
  - ABDOMINAL DISTENSION [None]
